FAERS Safety Report 5412246-4 (Version None)
Quarter: 2007Q3

REPORT INFORMATION
  Report Type: 
  Country: None (occurrence: None)
  Receive Date: 20070809
  Receipt Date: 20070730
  Transmission Date: 20080115
  Serious: Yes (Other)
  Sender: FDA-Public Use
  Company Number: CERZ-11820

PATIENT
  Age: 40 Year
  Sex: Male
  Weight: 88.4514 kg

DRUGS (4)
  1. CEREZYME [Suspect]
     Indication: GAUCHER'S DISEASE
     Dosage: 35 U/KG Q2WKS IV
     Route: 042
     Dates: start: 20070401
  2. CEREZYME [Suspect]
     Indication: GAUCHER'S DISEASE
     Dosage: 32 U/KG Q2WKS IV
     Route: 042
     Dates: start: 20060101, end: 20070401
  3. CEREZYME [Suspect]
     Indication: GAUCHER'S DISEASE
     Dosage: 20 U/KG Q2WKS IV
     Route: 042
     Dates: start: 20020101, end: 20060101
  4. CEREZYME [Suspect]
     Indication: GAUCHER'S DISEASE
     Dosage: 40 U/KG Q2WKS IV
     Route: 042
     Dates: start: 19970707, end: 20050101

REACTIONS (9)
  - ARTHRALGIA [None]
  - BLOOD DISORDER [None]
  - BONE DENSITY DECREASED [None]
  - BONE DISORDER [None]
  - BONE INFARCTION [None]
  - CONDITION AGGRAVATED [None]
  - MUSCULOSKELETAL PAIN [None]
  - SPINAL DISORDER [None]
  - SPLENOMEGALY [None]
